FAERS Safety Report 12563876 (Version 1)
Quarter: 2016Q3

REPORT INFORMATION
  Report Type: Other
  Country: US (occurrence: ES)
  Receive Date: 20160716
  Receipt Date: 20160716
  Transmission Date: 20161109
  Serious: No
  Sender: FDA-Public Use
  Company Number: ES-BRECKENRIDGE PHARMACEUTICAL, INC.-1055143

PATIENT
  Age: 77 Year
  Sex: Female

DRUGS (3)
  1. PHENELZINE SULFATE. [Interacting]
     Active Substance: PHENELZINE SULFATE
     Route: 048
  2. DULOXETHINE [Suspect]
     Active Substance: DULOXETINE
  3. OLANZAPINE. [Interacting]
     Active Substance: OLANZAPINE

REACTIONS (2)
  - Decerebration [Recovered/Resolved]
  - Drug interaction [Recovered/Resolved]
